FAERS Safety Report 22342068 (Version 2)
Quarter: 2023Q2

REPORT INFORMATION
  Report Type: Spontaneous
  Country: CN (occurrence: CN)
  Receive Date: 20230519
  Receipt Date: 20230522
  Transmission Date: 20230722
  Serious: Yes (Hospitalization)
  Sender: FDA-Public Use
  Company Number: CN-002147023-NVSC2023CN108394

PATIENT
  Age: 82 Year
  Sex: Male
  Weight: 65 kg

DRUGS (2)
  1. OXCARBAZEPINE [Suspect]
     Active Substance: OXCARBAZEPINE
     Indication: Epilepsy
     Dosage: 0.3 G, BID
     Route: 045
     Dates: start: 20170518
  2. OXCARBAZEPINE [Suspect]
     Active Substance: OXCARBAZEPINE
     Dosage: UNK (REDUCED DOSE)
     Route: 065
     Dates: start: 20230403, end: 20230406

REACTIONS (4)
  - Sleep disorder [Unknown]
  - Blister [Recovering/Resolving]
  - Pruritus [Recovering/Resolving]
  - Drug hypersensitivity [Unknown]

NARRATIVE: CASE EVENT DATE: 20230308
